FAERS Safety Report 23826903 (Version 1)
Quarter: 2024Q2

REPORT INFORMATION
  Report Type: Spontaneous
  Country: US (occurrence: US)
  Receive Date: 20240507
  Receipt Date: 20240507
  Transmission Date: 20240716
  Serious: No
  Sender: FDA-Public Use
  Company Number: US-AMGEN-USASP2024088944

PATIENT
  Sex: Female

DRUGS (2)
  1. OTEZLA [Suspect]
     Active Substance: APREMILAST
     Indication: Product used for unknown indication
     Dosage: UNK, BID
     Route: 065
  2. OTEZLA [Suspect]
     Active Substance: APREMILAST
     Dosage: QD (AT BEDTIME)
     Route: 065

REACTIONS (1)
  - Headache [Not Recovered/Not Resolved]
